FAERS Safety Report 8892495 (Version 1)
Quarter: 2012Q4

REPORT INFORMATION
  Report Type: Spontaneous
  Country: JP (occurrence: None)
  Receive Date: 20121031
  Receipt Date: 20121031
  Transmission Date: 20130627
  Serious: Yes (Hospitalization)
  Sender: FDA-Public Use
  Company Number: JP 2006 0029

PATIENT
  Age: 84 Year
  Sex: Male

DRUGS (2)
  1. LIPIODOL (ETHIODIZED OIL) (ETHIODIZED OIL) [Suspect]
     Dosage: (30 ml,1 in 1 D)
     Route: 013
     Dates: start: 20060524, end: 20060524
  2. CISPLATINE [Concomitant]

REACTIONS (2)
  - Cerebral artery embolism [None]
  - Off label use [None]
